FAERS Safety Report 18819454 (Version 1)
Quarter: 2021Q1

REPORT INFORMATION
  Report Type: Spontaneous
  Country: NL (occurrence: NL)
  Receive Date: 20210202
  Receipt Date: 20210202
  Transmission Date: 20210419
  Serious: Yes (Other)
  Sender: FDA-Public Use
  Company Number: NL-TEVA-2021-NL-1874243

PATIENT
  Age: 63 Year
  Sex: Female
  Weight: 56 kg

DRUGS (7)
  1. AZITROMYCINE TABLET 250MG / BRAND NAME NOT SPECIFIED [Concomitant]
     Dosage: 250 MG 3 X P WEEK, THERAPY START DATE; THERAPY END DATE : ASKED BUT UNKNOWN
  2. CALCIUMCARB/COLECALC KAUWTB 2,5G/880IE (1000MG CA) / CALCIUM/VITAMINE [Concomitant]
     Dosage: 1000 MG / 880IE AS OF JANUARY 13, 2021, THERAPY START DATE; THERAPY END DATE : ASKED BUT UNKNOWN
  3. MAGNESIUM LUCOVITAAL [Concomitant]
     Dosage: 400 MG, THERAPY START DATE; THERAPY END DATE : ASKED BUT UNKNOWN
  4. OMEPRAZOL CAPSULE MSR 20MG / MAAGZUURREMMER OMEPRAZOL CF CAPSULE MSR 2 [Concomitant]
     Dosage: 40 MG, THERAPY START DATE; THERAPY END DATE : ASKED BUT UNKNOWN
  5. DESLORATADINE TABLET 5MG / BRAND NAME NOT SPECIFIED [Concomitant]
     Dosage: 5 MG (MILLIGRAM), THERAPY START DATE; THERAPY END DATE : ASKED BUT UNKNOWN
  6. COLECALCIFEROL / BRAND NAME NOT SPECIFIED [Concomitant]
     Dosage: 25, THERAPY START DATE; THERAPY END DATE : ASKED BUT UNKNOWN
  7. ALENDRONINEZUUR TABLET 70MG / BRAND NAME NOT SPECIFIED [Suspect]
     Active Substance: ALENDRONIC ACID
     Indication: OSTEOPOROSIS
     Dosage: 1 X PER WEEK 70 MG
     Dates: start: 20210113, end: 20210114

REACTIONS (1)
  - Anuria [Recovering/Resolving]

NARRATIVE: CASE EVENT DATE: 20210113
